FAERS Safety Report 5964617-5 (Version None)
Quarter: 2008Q4

REPORT INFORMATION
  Report Type: 
  Country: None (occurrence: None)
  Receive Date: 20081120
  Receipt Date: 20081112
  Transmission Date: 20090506
  Serious: Yes (Hospitalization)
  Sender: FDA-Public Use
  Company Number: DSU-2008-01960

PATIENT
  Age: 66 Year
  Sex: Female

DRUGS (2)
  1. EVOXAC [Suspect]
     Indication: SJOGREN'S SYNDROME
     Dosage: PER ORAL
     Route: 048
  2. TYLENOIL (PARACETAMOL) (PARACETAMOL) [Concomitant]

REACTIONS (2)
  - CARDIAC OPERATION [None]
  - DRUG INEFFECTIVE [None]
